FAERS Safety Report 7125017-8 (Version None)
Quarter: 2010Q4

REPORT INFORMATION
  Report Type: 
  Country: None (occurrence: None)
  Receive Date: 20101123
  Receipt Date: 20101123
  Transmission Date: 20110411
  Serious: Yes (Hospitalization, Other)
  Sender: FDA-Public Use
  Company Number: None

PATIENT
  Age: 5 Month
  Sex: Female
  Weight: 8.1647 kg

DRUGS (1)
  1. TEETHING TABLETS 00.00MG HYLANDS [Suspect]
     Indication: TEETHING
     Dosage: 2 TO 3 TABLETS EVERY HOUR PO
     Route: 048
     Dates: start: 20100919, end: 20101117

REACTIONS (9)
  - ABNORMAL BEHAVIOUR [None]
  - AGITATION [None]
  - CONVULSION [None]
  - DRY SKIN [None]
  - FLUSHING [None]
  - HEPATOMEGALY [None]
  - HYPERAESTHESIA [None]
  - NASOPHARYNGITIS [None]
  - PRODUCT QUALITY ISSUE [None]
